FAERS Safety Report 9840359 (Version 1)
Quarter: 2014Q1

REPORT INFORMATION
  Report Type: Spontaneous
  Country: BR (occurrence: BR)
  Receive Date: 20140124
  Receipt Date: 20140124
  Transmission Date: 20141002
  Serious: Yes (Hospitalization, Other)
  Sender: FDA-Public Use
  Company Number: BR-JNJFOC-20140111168

PATIENT
  Age: 64 Year
  Sex: Female
  Weight: 62 kg

DRUGS (3)
  1. REMICADE [Suspect]
     Indication: CROHN^S DISEASE
     Route: 042
     Dates: start: 20131127
  2. REMICADE [Suspect]
     Indication: CROHN^S DISEASE
     Route: 042
     Dates: start: 20131213
  3. REMICADE [Suspect]
     Indication: CROHN^S DISEASE
     Route: 042
     Dates: start: 2012

REACTIONS (5)
  - Pulmonary embolism [Unknown]
  - Dyspnoea [Recovered/Resolved]
  - Deep vein thrombosis [Unknown]
  - Dysuria [Recovered/Resolved]
  - Malaise [Unknown]
